FAERS Safety Report 17809274 (Version 2)
Quarter: 2024Q1

REPORT INFORMATION
  Report Type: Spontaneous
  Country: FR (occurrence: FR)
  Receive Date: 20200521
  Receipt Date: 20240325
  Transmission Date: 20240410
  Serious: Yes (Hospitalization, Other)
  Sender: FDA-Public Use
  Company Number: FR-SA-2020SA122660

PATIENT
  Age: 50 Year
  Sex: Female
  Weight: 57 kg

DRUGS (8)
  1. DARUNAVIR [Suspect]
     Active Substance: DARUNAVIR
     Indication: HIV infection
     Dosage: 1 DOSAGE FORM, ONCE A DAY
     Route: 048
  2. ESOMEPRAZOLE [Suspect]
     Active Substance: ESOMEPRAZOLE
     Indication: Prophylaxis
     Dosage: 1 DOSAGE FORM, ONCE A DAY
     Route: 048
     Dates: start: 201708, end: 20171120
  3. HYDROXYZINE [Suspect]
     Active Substance: HYDROXYZINE HYDROCHLORIDE
     Indication: Anxiety
     Dosage: 2 DOSAGE FORM, ONCE A DAY
     Route: 048
  4. LORMETAZEPAM [Suspect]
     Active Substance: LORMETAZEPAM
     Indication: Insomnia
     Dosage: 1 DOSAGE FORM, ONCE A DAY
     Route: 048
  5. MIRTAZAPINE [Suspect]
     Active Substance: MIRTAZAPINE
     Indication: Depression
     Dosage: 30 MILLIGRAM, ONCE A DAY
     Route: 048
  6. EMTRICITABINE\TENOFOVIR DISOPROXIL FUMARATE [Suspect]
     Active Substance: EMTRICITABINE\TENOFOVIR DISOPROXIL FUMARATE
     Indication: HIV infection
     Dosage: 1 DOSAGE FORM, ONCE A DAY
     Route: 048
  7. DIVALPROEX SODIUM [Suspect]
     Active Substance: DIVALPROEX SODIUM
     Indication: Depression
     Dosage: 750 MILLIGRAM, ONCE A DAY
     Route: 048
     Dates: start: 201709, end: 20171107
  8. NORVIR [Suspect]
     Active Substance: RITONAVIR
     Indication: HIV infection
     Dosage: 1 DOSAGE FORM, ONCE A DAY
     Route: 048

REACTIONS (1)
  - Acute kidney injury [Recovered/Resolved with Sequelae]

NARRATIVE: CASE EVENT DATE: 20171101
